FAERS Safety Report 8474929-1 (Version None)
Quarter: 2012Q2

REPORT INFORMATION
  Report Type: 
  Country: None (occurrence: None)
  Receive Date: 20120628
  Receipt Date: 20120625
  Transmission Date: 20120825
  Serious: Yes (Other)
  Sender: FDA-Public Use
  Company Number: PHHY2012DE045006

PATIENT
  Sex: Female

DRUGS (2)
  1. TOPIRAMATE [Concomitant]
     Indication: COMPLICATED MIGRAINE
     Dosage: 100 MG, DAILY
     Route: 048
     Dates: start: 20090101
  2. GILENYA [Suspect]
     Indication: MULTIPLE SCLEROSIS
     Dosage: 0.5 MG, QD
     Route: 048
     Dates: start: 20120201, end: 20120503

REACTIONS (3)
  - SKIN HAEMORRHAGE [None]
  - LEUKOCYTOCLASTIC VASCULITIS [None]
  - ORAL CANDIDIASIS [None]
